FAERS Safety Report 12804749 (Version 1)
Quarter: 2016Q4

REPORT INFORMATION
  Report Type: Spontaneous
  Country: CN (occurrence: CN)
  Receive Date: 20161003
  Receipt Date: 20161003
  Transmission Date: 20170207
  Serious: Yes (Other)
  Sender: FDA-Public Use
  Company Number: CN-B.I. PHARMACEUTICALS,INC./RIDGEFIELD-2016-BI-63557CS

PATIENT
  Age: 83 Year
  Sex: Male

DRUGS (6)
  1. SPIRIVA [Suspect]
     Active Substance: TIOTROPIUM BROMIDE MONOHYDRATE
     Indication: CHRONIC OBSTRUCTIVE PULMONARY DISEASE
     Dosage: FORMULATION: INHALANT
     Route: 055
     Dates: start: 20140101, end: 20160524
  2. DUPHALAC [Concomitant]
     Active Substance: LACTULOSE
     Indication: PRODUCT USED FOR UNKNOWN INDICATION
     Dosage: DOSE PER APPLICATION: 2 BAGS/DAY
     Route: 065
  3. LACTULOSE. [Suspect]
     Active Substance: LACTULOSE
     Indication: CONSTIPATION
     Dosage: DOSE PER APPLICATION: 1 BAG
     Route: 048
     Dates: start: 20150929, end: 20160524
  4. AMINOPHYLLINE. [Concomitant]
     Active Substance: AMINOPHYLLINE
     Indication: CHRONIC OBSTRUCTIVE PULMONARY DISEASE
     Dosage: FORMULATION: SUSTAINED-RELEASE TABLETS
     Route: 048
     Dates: start: 20140301, end: 20160524
  5. GLYCERINE [Concomitant]
     Active Substance: GLYCERIN
     Indication: GASTROINTESTINAL PAIN
     Route: 065
  6. VENTOLIN [Concomitant]
     Active Substance: ALBUTEROL SULFATE
     Indication: CHRONIC OBSTRUCTIVE PULMONARY DISEASE
     Route: 065

REACTIONS (1)
  - Ileus [Recovered/Resolved with Sequelae]

NARRATIVE: CASE EVENT DATE: 20160523
